FAERS Safety Report 5164514-1 (Version None)
Quarter: 2006Q4

REPORT INFORMATION
  Report Type: 
  Country: None (occurrence: None)
  Receive Date: 20061127
  Receipt Date: 20061115
  Transmission Date: 20070319
  Serious: Yes (Hospitalization, Other)
  Sender: FDA-Public Use
  Company Number: 2006AP001018

PATIENT
  Age: 45 Year
  Sex: Female

DRUGS (4)
  1. LITHIUM CARBONATE CAP [Suspect]
     Indication: BIPOLAR I DISORDER
     Dosage: SEE IMAGE, PO
     Route: 048
     Dates: start: 19870101
  2. LAMOTRIGINE [Concomitant]
  3. RISPERIDONE [Concomitant]
  4. LEVOTHYROXINE SODIUM [Concomitant]

REACTIONS (7)
  - AKATHISIA [None]
  - BIPOLAR I DISORDER [None]
  - DISEASE RECURRENCE [None]
  - DRUG DOSE OMISSION [None]
  - HYPERPARATHYROIDISM SECONDARY [None]
  - PARATHYROID GLAND ENLARGEMENT [None]
  - PARATHYROID TUMOUR BENIGN [None]
